FAERS Safety Report 15296153 (Version 3)
Quarter: 2019Q1

REPORT INFORMATION
  Report Type: Spontaneous
  Country: CA (occurrence: CA)
  Receive Date: 20180820
  Receipt Date: 20190227
  Transmission Date: 20190417
  Serious: Yes (Death, Life-Threatening, Hospitalization, Disabling, Other)
  Sender: FDA-Public Use
  Company Number: CA-SA-2018SA000739

PATIENT
  Age: 61 Year
  Sex: Female
  Weight: 67 kg

DRUGS (33)
  1. DILTIAZEM HYDROCHLORIDE. [Suspect]
     Active Substance: DILTIAZEM HYDROCHLORIDE
     Indication: PRODUCT USED FOR UNKNOWN INDICATION
     Dosage: 180 MG,UNK
     Route: 048
     Dates: start: 2017, end: 2017
  2. METOPROLOL TARTRATE. [Suspect]
     Active Substance: METOPROLOL TARTRATE
     Dosage: 5 MG,Q6H
     Route: 042
     Dates: start: 2017
  3. CYCLOPHOSPHAMIDE. [Suspect]
     Active Substance: CYCLOPHOSPHAMIDE
     Dosage: 1060 MG,QOW
     Route: 042
  4. PANTOPRAZOLE [Suspect]
     Active Substance: PANTOPRAZOLE
     Indication: PRODUCT USED FOR UNKNOWN INDICATION
     Dosage: 8 MG,QH
     Route: 042
     Dates: start: 2017
  5. CEFTRIAXONE SODIUM. [Suspect]
     Active Substance: CEFTRIAXONE SODIUM
     Indication: PRODUCT USED FOR UNKNOWN INDICATION
     Dosage: 1 G, QD
     Route: 042
     Dates: start: 2017, end: 2017
  6. DIGOXIN. [Suspect]
     Active Substance: DIGOXIN
     Dosage: .25 MG,Q4H
     Route: 042
     Dates: start: 2017, end: 2017
  7. DOXORUBICIN [Suspect]
     Active Substance: DOXORUBICIN
     Indication: BREAST CANCER
     Dosage: 106 MG,QOW
     Route: 042
     Dates: start: 2017, end: 2017
  8. GABAPENTIN. [Concomitant]
     Active Substance: GABAPENTIN
     Dosage: UNK, UNK
     Route: 065
  9. CYCLOPHOSPHAMIDE. [Suspect]
     Active Substance: CYCLOPHOSPHAMIDE
     Indication: BREAST CANCER
     Dosage: 1060 MG,QOW
     Route: 042
  10. METOCLOPRAMIDE. [Concomitant]
     Active Substance: METOCLOPRAMIDE
     Dosage: 10 MG, Q6H
     Route: 065
     Dates: start: 20161215
  11. PACLITAXEL. [Suspect]
     Active Substance: PACLITAXEL
     Indication: BREAST CANCER
     Dosage: 297 MG,QOW
     Route: 042
     Dates: start: 2017, end: 2017
  12. AZITHROMYCIN ANHYDROUS. [Suspect]
     Active Substance: AZITHROMYCIN ANHYDROUS
     Indication: PRODUCT USED FOR UNKNOWN INDICATION
     Dosage: 500 MG,QD
     Route: 042
     Dates: start: 2017, end: 2017
  13. CYCLOPHOSPHAMIDE. [Suspect]
     Active Substance: CYCLOPHOSPHAMIDE
     Dosage: 1060 MG,QOW
     Route: 042
     Dates: start: 2017, end: 2017
  14. CYCLOPHOSPHAMIDE. [Suspect]
     Active Substance: CYCLOPHOSPHAMIDE
     Dosage: 1060 UNK
     Route: 042
  15. DEXAMETHASONE. [Concomitant]
     Active Substance: DEXAMETHASONE
     Dosage: UNK, UNK
     Route: 065
  16. METHYLPREDNISOLONE. [Suspect]
     Active Substance: METHYLPREDNISOLONE
     Indication: PRODUCT USED FOR UNKNOWN INDICATION
     Dosage: 125 MG,Q6H
     Route: 042
     Dates: start: 2017, end: 2017
  17. HYDROMORPHONE HYDROCHLORIDE. [Suspect]
     Active Substance: HYDROMORPHONE HYDROCHLORIDE
     Indication: PRODUCT USED FOR UNKNOWN INDICATION
     Dosage: UNK UNK,UNK
     Route: 042
     Dates: start: 2017, end: 2017
  18. TRASTUZUMAB. [Suspect]
     Active Substance: TRASTUZUMAB
     Indication: BREAST CANCER
     Dosage: UNK UNK,UNK
     Route: 065
  19. CYCLOPHOSPHAMIDE. [Suspect]
     Active Substance: CYCLOPHOSPHAMIDE
     Indication: BREAST CANCER
     Dosage: 1060 MG, QCY
     Route: 042
  20. HYDRALAZINE [Suspect]
     Active Substance: HYDRALAZINE HYDROCHLORIDE
     Dosage: 10 MG, 4X/DAY (1 EVERY 6HOUR(S)); INTRAVENOUS
     Route: 042
  21. DIMENHYDRINATE. [Suspect]
     Active Substance: DIMENHYDRINATE
     Indication: PRODUCT USED FOR UNKNOWN INDICATION
     Dosage: 50 MG, Q4H
     Route: 042
     Dates: start: 2017, end: 2017
  22. DIMENHYDRINATE. [Suspect]
     Active Substance: DIMENHYDRINATE
     Dosage: 50 MG, 4X/DAY
     Route: 042
  23. FILGRASTIM [Concomitant]
     Active Substance: FILGRASTIM
     Dosage: UNK, UNK
     Route: 065
  24. APREPITANT. [Concomitant]
     Active Substance: APREPITANT
     Dosage: UNK, UNK
     Route: 065
  25. FUROSEMIDE. [Suspect]
     Active Substance: FUROSEMIDE
     Indication: BREAST CANCER
     Dosage: 40 MG,QD
     Route: 048
     Dates: start: 2017, end: 2017
  26. AMIODARONE HYDROCHLORIDE. [Suspect]
     Active Substance: AMIODARONE HYDROCHLORIDE
     Indication: PRODUCT USED FOR UNKNOWN INDICATION
     Dosage: UNK UNK,UNK
     Route: 065
     Dates: start: 2017, end: 2017
  27. ENOXAPARIN SODIUM. [Suspect]
     Active Substance: ENOXAPARIN SODIUM
     Indication: PRODUCT USED FOR UNKNOWN INDICATION
     Dosage: 40 MG, QD
     Route: 058
     Dates: start: 2017, end: 2017
  28. MORPHINE SULFATE. [Suspect]
     Active Substance: MORPHINE SULFATE
     Indication: PRODUCT USED FOR UNKNOWN INDICATION
     Dosage: ONCE EVERY TEN MINUTES
     Route: 042
     Dates: start: 2017
  29. DIGOXIN. [Suspect]
     Active Substance: DIGOXIN
     Dosage: 10 MG,QH
     Route: 042
     Dates: start: 2017
  30. METOPROLOL TARTRATE. [Suspect]
     Active Substance: METOPROLOL TARTRATE
     Indication: PRODUCT USED FOR UNKNOWN INDICATION
     Dosage: 5 MG,Q6H
     Route: 042
     Dates: start: 2017, end: 2017
  31. CYCLOPHOSPHAMIDE. [Suspect]
     Active Substance: CYCLOPHOSPHAMIDE
     Dosage: 1060 UNK
     Route: 042
  32. HYDRALAZINE [Suspect]
     Active Substance: HYDRALAZINE HYDROCHLORIDE
     Indication: PRODUCT USED FOR UNKNOWN INDICATION
     Dosage: 10 MG, Q6H
     Route: 042
     Dates: start: 2017
  33. ONDANSETRON [Concomitant]
     Active Substance: ONDANSETRON
     Dosage: UNK, UNK
     Route: 065

REACTIONS (3)
  - Hypoxia [Fatal]
  - Alveolitis [Fatal]
  - Atrial fibrillation [Fatal]
